FAERS Safety Report 15990699 (Version 1)
Quarter: 2019Q1

REPORT INFORMATION
  Report Type: Spontaneous
  Country: US (occurrence: US)
  Receive Date: 20190221
  Receipt Date: 20190221
  Transmission Date: 20190418
  Serious: Yes (Hospitalization)
  Sender: FDA-Public Use
  Company Number: None

PATIENT
  Age: 62 Year
  Sex: Female

DRUGS (12)
  1. BUPROPION. [Concomitant]
     Active Substance: BUPROPION
  2. AFINITOR [Concomitant]
     Active Substance: EVEROLIMUS
  3. FENOFIBRIC [Concomitant]
     Active Substance: FENOFIBRIC ACID
  4. ZOFRAN [Concomitant]
     Active Substance: ONDANSETRON HYDROCHLORIDE
  5. FASLODEX [Concomitant]
     Active Substance: FULVESTRANT
  6. GLIPIZIDE. [Concomitant]
     Active Substance: GLIPIZIDE
  7. NEXIUM [Concomitant]
     Active Substance: ESOMEPRAZOLE MAGNESIUM
  8. LASIX [Concomitant]
     Active Substance: FUROSEMIDE
  9. MORPHINE [Concomitant]
     Active Substance: MORPHINE
  10. AFINITOR [Suspect]
     Active Substance: EVEROLIMUS
     Indication: MALIGNANT NIPPLE NEOPLASM FEMALE
     Route: 058
     Dates: start: 20180726
  11. LIVALO [Concomitant]
     Active Substance: PITAVASTATIN CALCIUM
  12. XARELTO [Concomitant]
     Active Substance: RIVAROXABAN

REACTIONS (1)
  - Renal failure [None]

NARRATIVE: CASE EVENT DATE: 20190207
